FAERS Safety Report 10133853 (Version 2)
Quarter: 2014Q3

REPORT INFORMATION
  Report Type: Report from Study
  Country: US (occurrence: US)
  Receive Date: 20140428
  Receipt Date: 20140923
  Transmission Date: 20150326
  Serious: Yes (Other)
  Sender: FDA-Public Use
  Company Number: US-NAPPMUNDI-DEU-2014-0014238

PATIENT
  Age: 58 Year
  Sex: Male
  Weight: 59.1 kg

DRUGS (29)
  1. TUSSIONEX PENNKINETIC [Concomitant]
     Active Substance: CHLORPHENIRAMINE\HYDROCODONE
     Indication: COUGH
     Dosage: 1 TABLESPOON/DAILY
     Route: 048
     Dates: start: 20140102
  2. COLACE [Concomitant]
     Active Substance: DOCUSATE SODIUM
     Indication: CONSTIPATION
     Dosage: 100MG/DAILY
     Dates: start: 20131030, end: 20140102
  3. TEA [Concomitant]
     Active Substance: TEA LEAF
  4. AMLODIPINE BESILATE [Concomitant]
     Active Substance: AMLODIPINE BESYLATE
     Indication: HYPERTENSION
     Dosage: 10MG/DAILY
     Route: 048
     Dates: start: 20130617, end: 20131221
  5. HYDROCHLOROTHIAZIDE W/LISINOPRIL [Concomitant]
     Active Substance: HYDROCHLOROTHIAZIDE\LISINOPRIL
     Indication: HYPERTENSION
     Dosage: 10MG/DAILY
     Route: 048
     Dates: start: 2010, end: 20131212
  6. TEMAZEPAM. [Concomitant]
     Active Substance: TEMAZEPAM
     Indication: INSOMNIA
     Dosage: 15MG/DAILY
     Route: 048
  7. SUPER B COMPLEX                    /01995301/ [Concomitant]
     Active Substance: CYANOCOBALAMIN\DEXPANTHENOL\NIACINAMIDE\PYRIDOXINE HYDROCHLORIDE\RIBOFLAVIN 5^-PHOSPHATE SODIUM\THIAMINE HYDROCHLORIDE\VITAMIN B COMPLEX
     Indication: VITAMIN SUPPLEMENTATION
     Dosage: 1 DF, DAILY
     Route: 048
     Dates: start: 201304, end: 20140121
  8. COENZYM Q10 [Concomitant]
     Indication: VITAMIN SUPPLEMENTATION
     Dosage: 300MG/DAILY
     Route: 048
     Dates: start: 201304, end: 20140121
  9. LORAZEPAM. [Concomitant]
     Active Substance: LORAZEPAM
     Indication: INSOMNIA
     Dosage: 2MG/DAILY
     Route: 048
     Dates: start: 20130313, end: 20131212
  10. AZTREONAM. [Concomitant]
     Active Substance: AZTREONAM
     Dosage: 2G/DAILY
     Route: 042
     Dates: start: 20140106, end: 20140113
  11. AMOXICILLIN/CLAVULANATE [Concomitant]
     Active Substance: AMOXICILLIN\CLAVULANATE POTASSIUM
     Indication: PNEUMONIA
     Dosage: 125MG/DAILY
     Route: 048
     Dates: start: 20140102, end: 20140106
  12. OXYCONTIN [Suspect]
     Active Substance: OXYCODONE HYDROCHLORIDE
     Indication: PAIN
     Dosage: 20 MG, DAILY
     Route: 048
     Dates: start: 20131126
  13. MPDL3280A (ANTI-PD-L1) [Suspect]
     Active Substance: INVESTIGATIONAL PRODUCT
     Indication: NON-SMALL CELL LUNG CANCER
     Dosage: 1200 MG, SEE TEXT
     Route: 042
  14. MPDL3280A (ANTI-PD-L1) [Suspect]
     Active Substance: INVESTIGATIONAL PRODUCT
     Dosage: 1200 MG, SEE TEXT
     Route: 042
     Dates: start: 20131025, end: 20131025
  15. LEVAQUIN [Concomitant]
     Active Substance: LEVOFLOXACIN
     Indication: PNEUMONIA
     Dosage: 750MG
     Route: 042
     Dates: start: 20140106, end: 20140112
  16. VITAMIN D3 [Concomitant]
     Active Substance: CHOLECALCIFEROL
     Indication: VITAMIN SUPPLEMENTATION
     Dosage: 2000 UNIT, UNK
     Route: 048
     Dates: start: 201304, end: 20140121
  17. K-DUR [Concomitant]
     Active Substance: POTASSIUM CHLORIDE
     Indication: HYPOKALAEMIA
     Dosage: 20 UNK, UNK
     Route: 048
     Dates: start: 20131223, end: 20131224
  18. DEMECLOCYCLINE HCL [Concomitant]
     Active Substance: DEMECLOCYCLINE HYDROCHLORIDE
     Indication: PNEUMONIA
     Dosage: 300MG/DAILY
     Route: 048
     Dates: start: 20131205, end: 20140102
  19. MPDL3280A (ANTI-PD-L1) [Suspect]
     Active Substance: INVESTIGATIONAL PRODUCT
     Dosage: 1200 MG, SEE TEXT
     Route: 042
     Dates: start: 20131114, end: 20131114
  20. HYDROCODONE BITARTRATE AND ACETAMINOPHEN [Suspect]
     Active Substance: ACETAMINOPHEN\HYDROCODONE BITARTRATE
     Indication: PAIN
     Dosage: 5MG/DAILY
     Route: 048
     Dates: start: 20130919, end: 20131212
  21. CHLORPHENIRAMINE MALEATE/HYDROCODONE TARTRATE [Concomitant]
     Indication: COUGH
     Dosage: 1UNIT/DAILY
     Route: 048
  22. MEDROL [Concomitant]
     Active Substance: METHYLPREDNISOLONE
     Indication: PNEUMONIA
     Dosage: 4MG/DAILY
     Route: 048
     Dates: start: 20131126, end: 20140106
  23. MPDL3280A (ANTI-PD-L1) [Suspect]
     Active Substance: INVESTIGATIONAL PRODUCT
     Dosage: 1200 MG, SEE TEXT
     Route: 042
     Dates: start: 20131215, end: 20131215
  24. MEGESTROL [Concomitant]
     Active Substance: MEGESTROL
     Indication: DECREASED APPETITE
     Dosage: 20 ML, UNK
     Route: 048
     Dates: start: 20131015, end: 20140121
  25. OXYGEN. [Concomitant]
     Active Substance: OXYGEN
     Indication: DYSPNOEA
     Dosage: UNK
     Route: 050
     Dates: start: 20131126
  26. OXYCODONE HYDROCHLORIDE (SIMILAR TO NDA 22-272) [Concomitant]
     Active Substance: OXYCODONE HYDROCHLORIDE
     Indication: PAIN
     Dosage: 20 MG, DAILY
     Route: 065
     Dates: start: 20140106, end: 20140117
  27. VANCOMYCIN [Concomitant]
     Active Substance: VANCOMYCIN
     Indication: PNEUMONIA
     Dosage: 1000MG/DAILY
     Route: 042
     Dates: start: 20140106, end: 20140113
  28. MUCINEX D [Concomitant]
     Active Substance: GUAIFENESIN\PSEUDOEPHEDRINE HYDROCHLORIDE
     Indication: COUGH
     Dosage: 1 DF, UNK
     Route: 048
     Dates: start: 20131022, end: 20140102
  29. AVELOX [Concomitant]
     Active Substance: MOXIFLOXACIN HYDROCHLORIDE
     Indication: PNEUMONIA
     Dosage: 400MG/DAILY
     Route: 048
     Dates: start: 20131126, end: 20131206

REACTIONS (7)
  - Dyspnoea [Unknown]
  - Aspartate aminotransferase increased [Recovered/Resolved]
  - Rash [Not Recovered/Not Resolved]
  - Alanine aminotransferase increased [Recovered/Resolved]
  - Alanine aminotransferase increased [Recovered/Resolved]
  - Aspartate aminotransferase increased [Recovered/Resolved]
  - Hypokalaemia [Unknown]

NARRATIVE: CASE EVENT DATE: 20131126
